FAERS Safety Report 12879713 (Version 1)
Quarter: 2016Q4

REPORT INFORMATION
  Report Type: Spontaneous
  Country: IT (occurrence: IT)
  Receive Date: 20161025
  Receipt Date: 20161025
  Transmission Date: 20170207
  Serious: Yes (Other)
  Sender: FDA-Public Use
  Company Number: IT-SUN PHARMACEUTICAL INDUSTRIES LTD-2016RR-126466

PATIENT
  Age: 80 Year
  Sex: Male
  Weight: 91 kg

DRUGS (4)
  1. CARDIOASPIRIN 100 MG [Concomitant]
     Active Substance: ASPIRIN
     Indication: PRODUCT USED FOR UNKNOWN INDICATION
     Dosage: 1 DF
     Route: 048
     Dates: start: 20090909, end: 20160711
  2. CONGESCOR 1.25 MG [Interacting]
     Active Substance: BISOPROLOL FUMARATE
     Indication: CARDIAC FAILURE
     Dosage: 2 DF DAILY
     Route: 048
     Dates: start: 20090930, end: 20160711
  3. PANTOPRAZOLE [Suspect]
     Active Substance: PANTOPRAZOLE SODIUM
     Indication: OESOPHAGITIS
     Dosage: 40 MG DAILY
     Route: 048
     Dates: start: 20150909, end: 20160711
  4. MIRTAZAPINA DOC [Interacting]
     Active Substance: MIRTAZAPINE
     Indication: DECREASED APPETITE
     Dosage: .5 DF DAILY
     Route: 048
     Dates: start: 20160404, end: 20160709

REACTIONS (6)
  - Hyperhidrosis [Recovering/Resolving]
  - Abnormal weight gain [Recovering/Resolving]
  - Arthralgia [Recovering/Resolving]
  - Hypotension [Recovering/Resolving]
  - Somnolence [Recovering/Resolving]
  - Dry mouth [Recovering/Resolving]

NARRATIVE: CASE EVENT DATE: 20160621
